FAERS Safety Report 16886569 (Version 1)
Quarter: 2019Q4

REPORT INFORMATION
  Report Type: Spontaneous
  Country: US (occurrence: US)
  Receive Date: 20191004
  Receipt Date: 20191004
  Transmission Date: 20200122
  Serious: No
  Sender: FDA-Public Use
  Company Number: US-SA-2019SA273445

PATIENT
  Age: 57 Year
  Sex: Female

DRUGS (1)
  1. ADMELOG [Suspect]
     Active Substance: INSULIN LISPRO
     Dosage: UNK
     Route: 065

REACTIONS (7)
  - Groin pain [Unknown]
  - Visual impairment [Unknown]
  - Unevaluable event [Unknown]
  - Fall [Unknown]
  - Foot fracture [Unknown]
  - Nerve compression [Unknown]
  - Back pain [Unknown]
